FAERS Safety Report 9787341 (Version 1)
Quarter: 2013Q4

REPORT INFORMATION
  Report Type: Spontaneous
  Country: US (occurrence: US)
  Receive Date: 20131230
  Receipt Date: 20131230
  Transmission Date: 20140711
  Serious: No
  Sender: FDA-Public Use
  Company Number: US-BIOGENIDEC-2013BI123412

PATIENT
  Age: 48 Year
  Sex: Female

DRUGS (7)
  1. TYSABRI [Suspect]
     Indication: MULTIPLE SCLEROSIS
     Route: 042
     Dates: start: 20070108
  2. TOPAMAX [Concomitant]
     Indication: CONVULSION
  3. TOPAMAX [Concomitant]
     Indication: CONVULSION
  4. TOPAMAX [Concomitant]
     Indication: EPILEPSY
  5. KEPPRA [Concomitant]
     Indication: CONVULSION
  6. KEPPRA [Concomitant]
     Indication: CONVULSION
  7. KEPPRA [Concomitant]
     Indication: EPILEPSY

REACTIONS (2)
  - Vagal nerve stimulator implantation [Recovered/Resolved]
  - Anaemia [Not Recovered/Not Resolved]
